FAERS Safety Report 4393549-1 (Version None)
Quarter: 2004Q3

REPORT INFORMATION
  Report Type: 
  Country: None (occurrence: None)
  Receive Date: 20040706
  Receipt Date: 20040706
  Transmission Date: 20050211
  Serious: Yes (Hospitalization)
  Sender: FDA-Public Use
  Company Number: None

PATIENT
  Sex: Male
  Weight: 85.7298 kg

DRUGS (2)
  1. IBUPROFEN [Suspect]
     Indication: PAIN IN EXTREMITY
     Dosage: 1200-1400 MG PO Q6H
     Route: 048
  2. NAPROXEN [Suspect]
     Dosage: PO
     Route: 048

REACTIONS (7)
  - ANAEMIA [None]
  - DRUG ABUSER [None]
  - GASTROINTESTINAL HAEMORRHAGE [None]
  - MELAENA [None]
  - OEDEMA [None]
  - PAIN IN EXTREMITY [None]
  - ULCER [None]
